FAERS Safety Report 16758898 (Version 1)
Quarter: 2019Q4

REPORT INFORMATION
  Report Type: Spontaneous
  Country: US (occurrence: US)
  Receive Date: 20190829
  Receipt Date: 20190829
  Transmission Date: 20200122
  Serious: Yes (Other)
  Sender: FDA-Public Use
  Company Number: None

PATIENT
  Age: 27 Year
  Sex: Female
  Weight: 49.9 kg

DRUGS (2)
  1. BETNOVATE [Suspect]
     Active Substance: BETAMETHASONE
  2. PROTOPIC [Suspect]
     Active Substance: TACROLIMUS

REACTIONS (5)
  - Anxiety [None]
  - Insomnia [None]
  - Erythema [None]
  - Drug withdrawal syndrome [None]
  - Pruritus [None]

NARRATIVE: CASE EVENT DATE: 20170201
